FAERS Safety Report 5399703-4 (Version None)
Quarter: 2007Q3

REPORT INFORMATION
  Report Type: 
  Country: None (occurrence: None)
  Receive Date: 20070727
  Receipt Date: 20070718
  Transmission Date: 20080115
  Serious: Yes (Other)
  Sender: FDA-Public Use
  Company Number: US-MERCK-0707USA03186

PATIENT
  Sex: Male

DRUGS (5)
  1. VYTORIN [Suspect]
     Route: 048
     Dates: start: 20030929, end: 20070614
  2. ZOCOR [Concomitant]
     Route: 048
     Dates: end: 20000301
  3. ZOCOR [Concomitant]
     Route: 048
     Dates: start: 20000301, end: 20010301
  4. ZOCOR [Concomitant]
     Route: 048
     Dates: start: 20010301, end: 20030929
  5. ZETIA [Concomitant]
     Route: 048
     Dates: start: 20030901, end: 20030929

REACTIONS (3)
  - NAUSEA [None]
  - RHABDOMYOLYSIS [None]
  - VENTRICULAR TACHYCARDIA [None]
